FAERS Safety Report 20857668 (Version 24)
Quarter: 2025Q4

REPORT INFORMATION
  Report Type: Spontaneous
  Country: CA (occurrence: CA)
  Receive Date: 20220521
  Receipt Date: 20251106
  Transmission Date: 20260117
  Serious: Yes (Other)
  Sender: CELLTRION
  Company Number: CA-CELLTRION INC.-2022CA004573

PATIENT

DRUGS (24)
  1. INFLECTRA [Suspect]
     Active Substance: INFLIXIMAB-DYYB
     Indication: Crohn^s disease
     Dosage: AT 0,2,6 WEEKS(WKS), THEN EVERY(Q)8WKS
     Route: 042
     Dates: start: 20220128
  2. INFLECTRA [Suspect]
     Active Substance: INFLIXIMAB-DYYB
     Indication: Crohn^s disease
     Dosage: AT 0,2,6 WKS, THEN Q8WKS
     Route: 042
     Dates: start: 20220210
  3. INFLECTRA [Suspect]
     Active Substance: INFLIXIMAB-DYYB
     Dosage: AT 0,2,6 WKS, THEN Q8WKS
     Route: 042
     Dates: start: 20220305
  4. INFLECTRA [Suspect]
     Active Substance: INFLIXIMAB-DYYB
     Dosage: AT 0,2,6 WKS, THEN Q8WKS
     Route: 042
     Dates: start: 20220310
  5. INFLECTRA [Suspect]
     Active Substance: INFLIXIMAB-DYYB
     Dosage: AT 0,2,6 WKS, THEN Q8WKS
     Route: 042
     Dates: start: 20220505
  6. INFLECTRA [Suspect]
     Active Substance: INFLIXIMAB-DYYB
     Dosage: AT 0,2,6 WKS, THEN Q8WKS
     Route: 042
     Dates: start: 20220630
  7. INFLECTRA [Suspect]
     Active Substance: INFLIXIMAB-DYYB
     Dosage: AT 0,2,6 WKS, THEN Q8WKS
     Route: 042
     Dates: start: 20220825
  8. INFLECTRA [Suspect]
     Active Substance: INFLIXIMAB-DYYB
     Dosage: AT 0,2,6 WKS, THEN Q8WKS
     Route: 042
     Dates: start: 20221020
  9. INFLECTRA [Suspect]
     Active Substance: INFLIXIMAB-DYYB
     Dosage: (5MG/KG)(DOSE SHOULD BE 450MG), Q6WKS
     Route: 042
     Dates: start: 20221207
  10. INFLECTRA [Suspect]
     Active Substance: INFLIXIMAB-DYYB
     Dosage: (5MG/KG), Q6WKS
     Route: 042
     Dates: start: 20230119
  11. INFLECTRA [Suspect]
     Active Substance: INFLIXIMAB-DYYB
     Dosage: Q6WKS
     Route: 042
     Dates: start: 20230301
  12. INFLECTRA [Suspect]
     Active Substance: INFLIXIMAB-DYYB
     Dosage: (10MG/KG), Q6WKS
     Route: 042
     Dates: start: 20230412
  13. INFLECTRA [Suspect]
     Active Substance: INFLIXIMAB-DYYB
     Dosage: Q6WKS
     Route: 042
     Dates: start: 20231011
  14. INFLECTRA [Suspect]
     Active Substance: INFLIXIMAB-DYYB
     Dosage: (10MG/KG), AFTER 6 WKS + 1 DAY
     Route: 042
     Dates: start: 20231123
  15. INFLECTRA [Suspect]
     Active Substance: INFLIXIMAB-DYYB
     Dosage: (10MG/KG), Q6WKS
     Route: 042
     Dates: start: 20240103
  16. INFLECTRA [Suspect]
     Active Substance: INFLIXIMAB-DYYB
     Dosage: (10MG/KG), Q6WKS
     Route: 042
     Dates: start: 20240215
  17. INFLECTRA [Suspect]
     Active Substance: INFLIXIMAB-DYYB
     Dosage: (10MG/KG) AFTER 7 WKS, (Q6WKS)
     Route: 042
     Dates: start: 20240404
  18. INFLECTRA [Suspect]
     Active Substance: INFLIXIMAB-DYYB
     Dosage: Q6WKS
     Route: 042
     Dates: start: 20240516
  19. INFLECTRA [Suspect]
     Active Substance: INFLIXIMAB-DYYB
     Dosage: 10MG/KG, Q6WKS
     Route: 042
     Dates: start: 20240627
  20. INFLECTRA [Suspect]
     Active Substance: INFLIXIMAB-DYYB
     Dosage: 10MG/KG, Q6WKS
     Route: 042
     Dates: start: 20241107
  21. INFLECTRA [Suspect]
     Active Substance: INFLIXIMAB-DYYB
     Dosage: (10MG/KG), Q6WKS
     Route: 042
     Dates: start: 20241219
  22. INFLECTRA [Suspect]
     Active Substance: INFLIXIMAB-DYYB
     Dosage: (10 MG/KG) AFTER 5 WKS + 6 DAYS (Q6WKS)
     Route: 042
     Dates: start: 20250129
  23. INFLECTRA [Suspect]
     Active Substance: INFLIXIMAB-DYYB
     Dosage: (10MG/KG) AFTER 8 WEEKS (Q6WKS)
     Route: 042
     Dates: start: 20250326
  24. METHOTREXATE SODIUM [Concomitant]
     Active Substance: METHOTREXATE SODIUM
     Dosage: UNK
     Dates: end: 20240328

REACTIONS (19)
  - Condition aggravated [Recovering/Resolving]
  - Anal fistula [Not Recovered/Not Resolved]
  - Colitis [Unknown]
  - Abscess [Recovered/Resolved]
  - Abscess drainage [Recovered/Resolved]
  - Weight increased [Not Recovered/Not Resolved]
  - Nasopharyngitis [Not Recovered/Not Resolved]
  - Irritable bowel syndrome [Unknown]
  - Prostatomegaly [Unknown]
  - Umbilical hernia [Unknown]
  - Cellulitis [Unknown]
  - Wound drainage [Unknown]
  - Constipation [Unknown]
  - Drug level above therapeutic [Unknown]
  - Therapeutic response shortened [Unknown]
  - Off label use [Unknown]
  - Off label use [Unknown]
  - Incorrect dose administered [Unknown]
  - Inappropriate schedule of product administration [Unknown]

NARRATIVE: CASE EVENT DATE: 20220101
